FAERS Safety Report 25514380 (Version 1)
Quarter: 2025Q3

REPORT INFORMATION
  Report Type: Spontaneous
  Country: US (occurrence: US)
  Receive Date: 20250703
  Receipt Date: 20250703
  Transmission Date: 20251021
  Serious: No
  Sender: RADIUS PHARM
  Company Number: US-RADIUS HEALTH INC.-2024US010813

PATIENT
  Age: 72 Year
  Sex: Female

DRUGS (2)
  1. TYMLOS [Suspect]
     Active Substance: ABALOPARATIDE
     Indication: Osteoporosis
     Route: 058
     Dates: start: 20240801
  2. CALCIUM [Suspect]
     Active Substance: CALCIUM
     Indication: Product used for unknown indication
     Dates: end: 202412

REACTIONS (6)
  - Blood parathyroid hormone decreased [Recovered/Resolved]
  - Memory impairment [Unknown]
  - Irritability [Unknown]
  - Product dose omission issue [Unknown]
  - Blood calcium increased [Recovered/Resolved]
  - Restless legs syndrome [Unknown]

NARRATIVE: CASE EVENT DATE: 20241213
